FAERS Safety Report 24784544 (Version 2)
Quarter: 2024Q4

REPORT INFORMATION
  Report Type: Spontaneous
  Country: US (occurrence: US)
  Receive Date: 20241227
  Receipt Date: 20241227
  Transmission Date: 20250115
  Serious: Yes (Life-Threatening, Hospitalization, Disabling, Other)
  Sender: BOEHRINGER INGELHEIM
  Company Number: US-Komodo Health-a23aa000004wIzxAAE

PATIENT
  Sex: Male

DRUGS (1)
  1. JARDIANCE [Suspect]
     Active Substance: EMPAGLIFLOZIN
     Indication: Product used for unknown indication
     Dates: start: 202410

REACTIONS (1)
  - Fournier^s gangrene [Not Recovered/Not Resolved]

NARRATIVE: CASE EVENT DATE: 20241201
